FAERS Safety Report 8480618 (Version 5)
Quarter: 2012Q4

REPORT INFORMATION
  Report Type: 
  Country: US (occurrence: US)
  Receive Date: 20120328
  Receipt Date: 20121106
  Transmission Date: 20130627
  Serious: Yes (Hospitalization)
  Sender: FDA-Public Use
  Company Number: US-GLAXOSMITHKLINE-A0971385A

PATIENT
  Age: 44 Year
  Sex: Female
  Weight: 46.4 kg

DRUGS (2)
  1. FLOLAN [Suspect]
     Indication: ESSENTIAL HYPERTENSION
     Dates: start: 19991101
  2. FLOLAN [Suspect]
     Indication: PRODUCT USED FOR UNKNOWN INDICATION

REACTIONS (2)
  - Hospitalisation [Recovered/Resolved]
  - Device occlusion [Recovered/Resolved]
